FAERS Safety Report 4899874-X (Version None)
Quarter: 2006Q1

REPORT INFORMATION
  Report Type: 
  Country: None (occurrence: None)
  Receive Date: 20060118
  Receipt Date: 20050929
  Transmission Date: 20060701
  Serious: No
  Sender: FDA-Public Use
  Company Number: 2005000516

PATIENT
  Age: 76 Year
  Sex: Female
  Weight: 51.2565 kg

DRUGS (5)
  1. TARCEVA [Suspect]
     Indication: NON-SMALL CELL LUNG CANCER
     Dosage: 150 MG (QD), ORAL; 150 MG (QD), ORAL
     Route: 048
     Dates: start: 20050107, end: 20050715
  2. TARCEVA [Suspect]
     Indication: NON-SMALL CELL LUNG CANCER
     Dosage: 150 MG (QD), ORAL; 150 MG (QD), ORAL
     Route: 048
     Dates: start: 20050801
  3. ESOMEPRAZOLE [Concomitant]
  4. WARFARIN [Concomitant]
  5. CITALOPRAM HYDROBROMIDE [Concomitant]

REACTIONS (11)
  - ANOREXIA [None]
  - COUGH [None]
  - DIARRHOEA [None]
  - DRY SKIN [None]
  - DYSPNOEA [None]
  - FLATULENCE [None]
  - HAEMORRHAGE [None]
  - PRURITUS ANI [None]
  - RASH [None]
  - STOMACH DISCOMFORT [None]
  - WEIGHT DECREASED [None]
